FAERS Safety Report 6145728-0 (Version None)
Quarter: 2009Q2

REPORT INFORMATION
  Report Type: 
  Country: None (occurrence: None)
  Receive Date: 20090407
  Receipt Date: 20090331
  Transmission Date: 20091009
  Serious: Yes (Hospitalization, Other)
  Sender: FDA-Public Use
  Company Number: GB-ELI_LILLY_AND_COMPANY-GB200903007732

PATIENT
  Age: 47 Year
  Sex: Male
  Weight: 115 kg

DRUGS (3)
  1. BYETTA [Suspect]
     Indication: TYPE 2 DIABETES MELLITUS
     Dosage: 10 MG, 2/D
     Route: 058
     Dates: start: 20090101, end: 20090304
  2. ASPIRIN [Concomitant]
     Dosage: 75 MG, UNK
     Route: 048
  3. LIZINOPRIL [Concomitant]
     Indication: HYPERTENSION

REACTIONS (1)
  - RECTAL HAEMORRHAGE [None]
